FAERS Safety Report 18640204 (Version 1)
Quarter: 2020Q4

REPORT INFORMATION
  Report Type: Spontaneous
  Country: CA (occurrence: CA)
  Receive Date: 20201220
  Receipt Date: 20201220
  Transmission Date: 20210114
  Serious: Yes (Other)
  Sender: FDA-Public Use
  Company Number: CA-009507513-2012CAN007692

PATIENT

DRUGS (4)
  1. ACLASTA [Suspect]
     Active Substance: ZOLEDRONIC ACID
     Indication: OSTEOPOROSIS
     Dosage: 5 MILLIGRAM; (5 MILLIGRAM ONCE IN A YEAR), FORMULATION: SOLUTION
     Route: 042
  2. ERGOCALCIFEROL. [Concomitant]
     Active Substance: ERGOCALCIFEROL
     Indication: PRODUCT USED FOR UNKNOWN INDICATION
     Dosage: 1 DOSAGE FORM, ONCE A DAY
     Route: 065
  3. FOSAMAX [Suspect]
     Active Substance: ALENDRONATE SODIUM
     Indication: PRODUCT USED FOR UNKNOWN INDICATION
     Dosage: UNK
     Route: 065
  4. ACLASTA [Suspect]
     Active Substance: ZOLEDRONIC ACID
     Indication: OSTEOPOROSIS
     Dosage: 5 MILLIGRAM, QD (5 MILLIGRAM ONCE IN A YEAR)
     Route: 042

REACTIONS (7)
  - Spinal deformity [Unknown]
  - Incorrect product administration duration [Unknown]
  - Syncope [Unknown]
  - Infusion related reaction [Unknown]
  - Foot fracture [Unknown]
  - Gastrointestinal disorder [Unknown]
  - Body height decreased [Unknown]
